FAERS Safety Report 9813725 (Version 2)
Quarter: 2014Q2

REPORT INFORMATION
  Report Type: Spontaneous
  Country: FR (occurrence: FR)
  Receive Date: 20140113
  Receipt Date: 20140526
  Transmission Date: 20141212
  Serious: Yes (Hospitalization)
  Sender: FDA-Public Use
  Company Number: FR-BRISTOL-MYERS SQUIBB COMPANY-19978972

PATIENT
  Age: 52 Year
  Sex: Male

DRUGS (3)
  1. COUMADINE [Suspect]
     Dates: start: 20120202, end: 20120324
  2. INEXIUM [Suspect]
     Dosage: TABLET
     Dates: start: 20120123, end: 20120324
  3. KARDEGIC [Suspect]
     Dosage: ORAL SOLUTION IN SACHET,POWDER.
     Route: 048
     Dates: start: 20120113, end: 20120324

REACTIONS (1)
  - Drug reaction with eosinophilia and systemic symptoms [Recovered/Resolved]
